FAERS Safety Report 12523743 (Version 1)
Quarter: 2016Q3

REPORT INFORMATION
  Report Type: Spontaneous
  Country: FR (occurrence: FR)
  Receive Date: 20160704
  Receipt Date: 20160704
  Transmission Date: 20161109
  Serious: Yes (Other)
  Sender: FDA-Public Use
  Company Number: FR-ROCHE-1784010

PATIENT
  Age: 57 Year
  Sex: Male

DRUGS (10)
  1. COTELLIC [Suspect]
     Active Substance: COBIMETINIB
     Dosage: 1 TABLET
     Route: 048
     Dates: start: 20160129
  2. PARACETAMOL [Concomitant]
     Active Substance: ACETAMINOPHEN
  3. ZELBORAF [Suspect]
     Active Substance: VEMURAFENIB
     Indication: MALIGNANT MELANOMA
     Route: 048
     Dates: start: 20131021
  4. JANUMET [Concomitant]
     Active Substance: METFORMIN HYDROCHLORIDE\SITAGLIPTIN PHOSPHATE
  5. GLIMEPIRIDE. [Concomitant]
     Active Substance: GLIMEPIRIDE
  6. KEPPRA [Concomitant]
     Active Substance: LEVETIRACETAM
  7. COTELLIC [Suspect]
     Active Substance: COBIMETINIB
     Indication: MALIGNANT MELANOMA
     Route: 048
     Dates: start: 20150505, end: 20151231
  8. LYRICA [Concomitant]
     Active Substance: PREGABALIN
  9. PRAVASTATIN. [Concomitant]
     Active Substance: PRAVASTATIN
  10. RAMIPRIL. [Concomitant]
     Active Substance: RAMIPRIL
     Dosage: 1 TABLET A DAY
     Route: 065

REACTIONS (1)
  - Myocarditis [Not Recovered/Not Resolved]

NARRATIVE: CASE EVENT DATE: 201512
